FAERS Safety Report 9833021 (Version 1)
Quarter: 2014Q1

REPORT INFORMATION
  Report Type: Spontaneous
  Country: US (occurrence: US)
  Receive Date: 20140121
  Receipt Date: 20140121
  Transmission Date: 20141002
  Serious: Yes (Congenital Anomaly, Other)
  Sender: FDA-Public Use
  Company Number: US-PFIZER INC-2014015510

PATIENT
  Sex: 0

DRUGS (3)
  1. ZOLOFT [Suspect]
     Indication: DEPRESSION
     Dosage: UNK
     Route: 064
  2. ZOLOFT [Suspect]
     Indication: ANXIETY
  3. ZOLOFT [Suspect]
     Indication: AFFECTIVE DISORDER

REACTIONS (7)
  - Foetal exposure during pregnancy [Unknown]
  - Persistent foetal circulation [Unknown]
  - Patent ductus arteriosus [Unknown]
  - Congenital tracheomalacia [Unknown]
  - Tricuspid valve disease [Unknown]
  - Atrial septal defect [Unknown]
  - Right aortic arch [Unknown]
